FAERS Safety Report 6834568-2 (Version None)
Quarter: 2010Q3

REPORT INFORMATION
  Report Type: 
  Country: None (occurrence: None)
  Receive Date: 20100712
  Receipt Date: 20071009
  Transmission Date: 20110219
  Serious: Yes (Other)
  Sender: FDA-Public Use
  Company Number: US-PFIZER INC-2007030645

PATIENT

DRUGS (5)
  1. CHANTIX [Suspect]
  2. RISPERDAL [Interacting]
  3. INDERAL [Interacting]
  4. BENZTROPINE MESYLATE [Interacting]
  5. EFFEXOR XR [Interacting]

REACTIONS (2)
  - DRUG INTERACTION [None]
  - SUICIDAL IDEATION [None]
